FAERS Safety Report 16495698 (Version 2)
Quarter: 2019Q3

REPORT INFORMATION
  Report Type: Spontaneous
  Country: NL (occurrence: ES)
  Receive Date: 20190628
  Receipt Date: 20190729
  Transmission Date: 20191004
  Serious: Yes (Other)
  Sender: FDA-Public Use
  Company Number: ES-FRESENIUS KABI-FK201906943

PATIENT
  Age: 73 Year
  Sex: Male
  Weight: 73 kg

DRUGS (3)
  1. CAPECITABINE (MANUFACTURER UNKNOWN) [Suspect]
     Active Substance: CAPECITABINE
     Indication: COLORECTAL CANCER
     Route: 065
  2. BEVACIZUMAB. [Suspect]
     Active Substance: BEVACIZUMAB
     Indication: COLORECTAL CANCER
     Route: 065
     Dates: start: 20150924, end: 20160714
  3. OXALIPLATIN (MANUFACTURER UNKNOWN) [Suspect]
     Active Substance: OXALIPLATIN
     Indication: COLORECTAL CANCER
     Route: 065

REACTIONS (2)
  - Pneumatosis intestinalis [Recovering/Resolving]
  - Aortic thrombosis [Recovered/Resolved]

NARRATIVE: CASE EVENT DATE: 201608
